FAERS Safety Report 8506238-6 (Version None)
Quarter: 2012Q3

REPORT INFORMATION
  Report Type: 
  Country: None (occurrence: None)
  Receive Date: 20120712
  Receipt Date: 20120628
  Transmission Date: 20120928
  Serious: Yes (Other)
  Sender: FDA-Public Use
  Company Number: US-WATSON-2012-11430

PATIENT
  Sex: Female

DRUGS (10)
  1. REGLAN [Suspect]
     Indication: ABDOMINAL PAIN
  2. REGLAN [Suspect]
     Indication: DYSPEPSIA
  3. METOCLOPRAMIDE HYDROCHLORIDE [Suspect]
     Indication: GASTROOESOPHAGEAL REFLUX DISEASE
  4. METOCLOPRAMIDE HYDROCHLORIDE [Suspect]
     Indication: ABDOMINAL PAIN
  5. REGLAN [Suspect]
     Indication: NAUSEA
  6. METOCLOPRAMIDE HYDROCHLORIDE [Suspect]
     Indication: DYSPEPSIA
  7. METOCLOPRAMIDE HYDROCHLORIDE [Suspect]
     Indication: NAUSEA
  8. REGLAN [Suspect]
     Indication: GASTROOESOPHAGEAL REFLUX DISEASE
  9. METOCLOPRAMIDE HYDROCHLORIDE [Suspect]
     Indication: ABDOMINAL DISTENSION
     Dosage: UNK
     Route: 048
     Dates: start: 20031001, end: 20090601
  10. REGLAN [Suspect]
     Indication: ABDOMINAL DISTENSION
     Dosage: UNK
     Route: 048
     Dates: start: 20031001, end: 20090601

REACTIONS (5)
  - EXTRAPYRAMIDAL DISORDER [None]
  - NERVOUS SYSTEM DISORDER [None]
  - INCORRECT DRUG ADMINISTRATION DURATION [None]
  - RESTLESS LEGS SYNDROME [None]
  - TARDIVE DYSKINESIA [None]
